FAERS Safety Report 7444393-X (Version None)
Quarter: 2011Q2

REPORT INFORMATION
  Report Type: 
  Country: None (occurrence: None)
  Receive Date: 20110419
  Receipt Date: 20110406
  Transmission Date: 20111010
  Serious: Yes (Hospitalization)
  Sender: FDA-Public Use
  Company Number: JP-2011-10556

PATIENT
  Age: 54 Year
  Sex: Male
  Weight: 50 kg

DRUGS (7)
  1. LASIX (FOROSEMIDE) [Concomitant]
  2. VANCOMYCIN [Concomitant]
  3. HANP (CARPERITIDE) [Concomitant]
  4. SAMSCA [Suspect]
     Indication: PULMONARY OEDEMA
     Dosage: 7.5 MG MILLIGRAM(S), QAM, PARENTERAL
     Route: 051
     Dates: start: 20110318, end: 20110320
  5. DOPAMINE HCL [Concomitant]
  6. ARTIST (CARVEDILOL) [Concomitant]
  7. SELARA (EPLERENONE) [Concomitant]

REACTIONS (3)
  - DEHYDRATION [None]
  - HAEMODIALYSIS [None]
  - HYPERNATRAEMIA [None]
